FAERS Safety Report 14566231 (Version 1)
Quarter: 2018Q1

REPORT INFORMATION
  Report Type: Spontaneous
  Country: US (occurrence: US)
  Receive Date: 20180223
  Receipt Date: 20180223
  Transmission Date: 20180509
  Serious: Yes (Other)
  Sender: FDA-Public Use
  Company Number: US-PFIZER INC-2018072870

PATIENT
  Age: 13 Month
  Sex: Female
  Weight: 9.5 kg

DRUGS (2)
  1. CEFUROXIME. [Concomitant]
     Active Substance: CEFUROXIME
     Dosage: UNK
     Dates: start: 20180119
  2. CLINDAMYCIN. [Suspect]
     Active Substance: CLINDAMYCIN
     Indication: ANIMAL BITE
     Dosage: 2.3 ML, SINGLE
     Dates: start: 20180119, end: 20180119

REACTIONS (2)
  - Drug effect decreased [Unknown]
  - Expired product administered [Unknown]

NARRATIVE: CASE EVENT DATE: 20180119
